FAERS Safety Report 12214723 (Version 1)
Quarter: 2016Q1

REPORT INFORMATION
  Report Type: Spontaneous
  Country: IT (occurrence: BR)
  Receive Date: 20160328
  Receipt Date: 20160328
  Transmission Date: 20160526
  Serious: Yes (Hospitalization)
  Sender: FDA-Public Use
  Company Number: BR-FRI-1000083494

PATIENT
  Age: 90 Year
  Sex: Female

DRUGS (5)
  1. ESPIRONOLACTONA [Concomitant]
     Active Substance: SPIRONOLACTONE
     Dates: start: 20130101
  2. MONUROL [Suspect]
     Active Substance: FOSFOMYCIN TROMETHAMINE
     Indication: URINARY TRACT INFECTION
     Dosage: 1 DF
     Route: 048
     Dates: start: 20160311, end: 20160311
  3. QUETIAPINA [Concomitant]
     Active Substance: QUETIAPINE
     Dates: start: 20100101
  4. KARVIL [Concomitant]
     Dates: start: 20140901
  5. LOSARTANA POTASSICA [Concomitant]
     Active Substance: LOSARTAN
     Dates: start: 20130101

REACTIONS (9)
  - Anal sphincter atony [Unknown]
  - Hypertonia [Unknown]
  - Cardiac arrest [Unknown]
  - Dyspnoea [Unknown]
  - Hyporesponsive to stimuli [Unknown]
  - Diarrhoea [Unknown]
  - Hyperthermia [Unknown]
  - Depressed level of consciousness [Unknown]
  - Pneumonia [Unknown]

NARRATIVE: CASE EVENT DATE: 20160311
